FAERS Safety Report 6128011-9 (Version None)
Quarter: 2009Q1

REPORT INFORMATION
  Report Type: 
  Country: None (occurrence: None)
  Receive Date: 20090320
  Receipt Date: 20090320
  Transmission Date: 20090719
  Serious: Yes (Other)
  Sender: FDA-Public Use
  Company Number: None

PATIENT
  Age: 75 Year
  Sex: Male
  Weight: 83.9154 kg

DRUGS (1)
  1. LEVAQUIN [Suspect]
     Indication: LYMPHADENOPATHY
     Dosage: TWICE DAILY BY MOUTH
     Route: 048
     Dates: start: 20090220, end: 20090221

REACTIONS (7)
  - BALANCE DISORDER [None]
  - DISCOMFORT [None]
  - INJURY [None]
  - PARAESTHESIA [None]
  - TENDERNESS [None]
  - TENDON DISORDER [None]
  - TREMOR [None]
